FAERS Safety Report 5238012-0 (Version None)
Quarter: 2007Q1

REPORT INFORMATION
  Report Type: 
  Country: None (occurrence: None)
  Receive Date: 20070214
  Receipt Date: 20070131
  Transmission Date: 20070707
  Serious: Yes (Hospitalization, Other)
  Sender: FDA-Public Use
  Company Number: JP-PFIZER INC-2007003362

PATIENT
  Sex: Male
  Weight: 57 kg

DRUGS (16)
  1. DETRUSITOL SR [Suspect]
     Indication: HYPERTONIC BLADDER
     Route: 048
     Dates: start: 20061120, end: 20070106
  2. URIEF [Suspect]
     Indication: BENIGN PROSTATIC HYPERPLASIA
     Route: 048
  3. ANTI-DIABETICS [Concomitant]
  4. BASEN [Concomitant]
     Route: 048
     Dates: start: 20040507, end: 20070106
  5. ENALAPRIL MALEATE [Concomitant]
     Route: 048
     Dates: start: 20040507
  6. TORSEMIDE [Concomitant]
     Route: 048
     Dates: start: 20040507
  7. WARFARIN SODIUM [Concomitant]
     Route: 048
     Dates: start: 20040507
  8. NORVASC [Concomitant]
     Route: 048
     Dates: start: 20040507
  9. AMARYL [Concomitant]
     Route: 048
     Dates: start: 20040507, end: 20070106
  10. TAKEPRON [Concomitant]
     Route: 048
     Dates: start: 20040507
  11. SALOBEL [Concomitant]
     Route: 048
     Dates: start: 20040507
  12. MUCODYNE [Concomitant]
     Route: 048
     Dates: start: 20040507
  13. LENDORMIN [Concomitant]
     Route: 048
     Dates: start: 20040507
  14. ARTIST [Concomitant]
     Route: 048
     Dates: start: 20040507
  15. THEOPHYLLINE [Concomitant]
     Route: 048
     Dates: start: 20040507
  16. PLETAL [Concomitant]
     Route: 048
     Dates: start: 20040507

REACTIONS (3)
  - DEPRESSED LEVEL OF CONSCIOUSNESS [None]
  - HYPOGLYCAEMIA [None]
  - INFLAMMATION [None]
